FAERS Safety Report 6918062-6 (Version None)
Quarter: 2010Q3

REPORT INFORMATION
  Report Type: 
  Country: None (occurrence: None)
  Receive Date: 20100810
  Receipt Date: 20091208
  Transmission Date: 20110219
  Serious: No
  Sender: FDA-Public Use
  Company Number: US-PFIZER INC-2009263430

PATIENT
  Age: 66 Year
  Sex: Male
  Weight: 74.8 kg

DRUGS (10)
  1. TOVIAZ [Suspect]
     Indication: POLLAKIURIA
     Dosage: 8 MG, 1X/DAY
     Route: 048
     Dates: start: 20090401
  2. TOVIAZ [Suspect]
     Indication: BLADDER SPASM
  3. NEXIUM [Concomitant]
     Dosage: 40 MG, UNK
  4. RANITIDINE [Concomitant]
     Dosage: 300 MG, UNK
  5. LORATADINE [Concomitant]
     Dosage: 10 MG, UNK
  6. ASCORBIC ACID [Concomitant]
     Dosage: UNK
  7. CITRACAL [Concomitant]
     Dosage: 500 MG, 2X/DAY
  8. MAGNESIUM [Concomitant]
     Dosage: UNK
  9. VITAMIN D [Concomitant]
     Dosage: 1000 UG, UNK
  10. ACETYLSALICYLIC ACID [Concomitant]
     Dosage: 162 MG, UNK

REACTIONS (8)
  - BALANCE DISORDER [None]
  - DIZZINESS [None]
  - DRY MOUTH [None]
  - GASTROINTESTINAL MOTILITY DISORDER [None]
  - HEADACHE [None]
  - HYPOAESTHESIA FACIAL [None]
  - MUSCLE SPASMS [None]
  - SOMNOLENCE [None]
